FAERS Safety Report 15371531 (Version 1)
Quarter: 2018Q3

REPORT INFORMATION
  Report Type: Spontaneous
  Country: US (occurrence: US)
  Receive Date: 20180905
  Receipt Date: 20180905
  Transmission Date: 20181010
  Serious: Yes (Life-Threatening, Hospitalization, Disabling, Other)
  Sender: FDA-Public Use
  Company Number: None

PATIENT
  Age: 55 Year
  Sex: Male
  Weight: 90 kg

DRUGS (7)
  1. METFORMIN [Concomitant]
     Active Substance: METFORMIN HYDROCHLORIDE
  2. AMLODIPINE 10 MG [Concomitant]
     Active Substance: AMLODIPINE BESYLATE
  3. SILDENAFIL 50 MG [Concomitant]
  4. LOSARTAN 100 MG [Concomitant]
     Active Substance: LOSARTAN
  5. ATORVASTATIN 10 MG [Suspect]
     Active Substance: ATORVASTATIN
  6. VALSARTAN TABLETS, USP [Suspect]
     Active Substance: VALSARTAN
     Indication: HYPERTENSION
     Dosage: ?          QUANTITY:1 TABLET(S);?
     Route: 048
  7. LEVOTHYROXINE 00.75MG [Concomitant]

REACTIONS (7)
  - Headache [None]
  - Dizziness [None]
  - Pituitary tumour [None]
  - Fatigue [None]
  - Memory impairment [None]
  - Visual impairment [None]
  - Libido decreased [None]

NARRATIVE: CASE EVENT DATE: 20151103
